FAERS Safety Report 25885553 (Version 2)
Quarter: 2025Q4

REPORT INFORMATION
  Report Type: Spontaneous
  Country: EU (occurrence: EU)
  Receive Date: 20251006
  Receipt Date: 20251111
  Transmission Date: 20260118
  Serious: Yes (Life-Threatening, Hospitalization)
  Sender: BAUSCH AND LOMB
  Company Number: EU-MLMSERVICE-20250924-PI657900-00217-1

PATIENT
  Age: 63 Year
  Sex: Female

DRUGS (7)
  1. METFORMIN [Suspect]
     Active Substance: METFORMIN HYDROCHLORIDE
     Indication: Type 2 diabetes mellitus
     Route: 065
  2. OZEMPIC [Suspect]
     Active Substance: SEMAGLUTIDE
     Indication: Type 2 diabetes mellitus
     Dosage: DOSE AT HOME, 0.5 MG 1 ? WEEK
     Route: 065
  3. GLICLAZIDE [Concomitant]
     Active Substance: GLICLAZIDE
     Indication: Type 2 diabetes mellitus
     Dosage: 60 MG 1 ? PER DAY, DOSE AT HOME. DURING CLINICAL ADMISSION AND DOSE AT DISCHARGE
  4. ENALAPRIL [Concomitant]
     Active Substance: ENALAPRIL
     Indication: Product used for unknown indication
     Dosage: 10 MG 1 ? PER DAY, DOSE AT HOME
  5. HYDROCHLOROTHIAZIDE [Concomitant]
     Active Substance: HYDROCHLOROTHIAZIDE
     Indication: Product used for unknown indication
     Dosage: 12.5 MG 1 ? PER DAY, DOSE AT HOME
  6. PANTOPRAZOLE [Concomitant]
     Active Substance: PANTOPRAZOLE
     Indication: Product used for unknown indication
     Dosage: 40 MG 1 ? PER DAY, DOSE AT HOME, DOSE DURING CLINICAL ADMISSION, DOSE AT DISCHARGE
  7. SIMVASTATIN [Concomitant]
     Active Substance: SIMVASTATIN
     Indication: Product used for unknown indication
     Dosage: 40 MG 1 ? PER DAY, DOSE AT HOME, DOSE DURING CLINICAL ADMISSION, DOSE AT DISCHARGE

REACTIONS (3)
  - Toxicity to various agents [Recovered/Resolved]
  - Drug intolerance [Recovered/Resolved]
  - Lactic acidosis [Recovered/Resolved]
